FAERS Safety Report 5957798-0 (Version None)
Quarter: 2008Q4

REPORT INFORMATION
  Report Type: 
  Country: None (occurrence: None)
  Receive Date: 20081107
  Receipt Date: 20081030
  Transmission Date: 20090506
  Serious: Yes (Hospitalization)
  Sender: FDA-Public Use
  Company Number: 2008BI029266

PATIENT
  Age: 61 Year
  Sex: Female

DRUGS (2)
  1. AVONEX [Suspect]
     Indication: MULTIPLE SCLEROSIS
     Dosage: IM : 30 UG;QW;IM : 30 UG;QW;IM
     Route: 030
     Dates: start: 20040701, end: 20050101
  2. AVONEX [Suspect]
     Indication: MULTIPLE SCLEROSIS
     Dosage: IM : 30 UG;QW;IM : 30 UG;QW;IM
     Route: 030
     Dates: start: 20080101

REACTIONS (1)
  - BRONCHOPNEUMONIA [None]
